FAERS Safety Report 21944018 (Version 1)
Quarter: 2023Q1

REPORT INFORMATION
  Report Type: Report from Study
  Country: US (occurrence: US)
  Receive Date: 20230202
  Receipt Date: 20230202
  Transmission Date: 20230418
  Serious: Yes (Hospitalization)
  Sender: FDA-Public Use
  Company Number: US-BAUSCH-BL-2022-027262

PATIENT
  Age: 76 Year
  Sex: Female
  Weight: 65.104 kg

DRUGS (14)
  1. XIFAXAN [Suspect]
     Active Substance: RIFAXIMIN
     Indication: Hepatic encephalopathy
     Route: 048
  2. LACTULOSE [Suspect]
     Active Substance: LACTULOSE
     Indication: Hepatic encephalopathy
     Dosage: 10GM/15ML
     Route: 048
  3. LACTULOSE [Suspect]
     Active Substance: LACTULOSE
     Dosage: 10GM/15ML, 15 ML AS NEEDED TWICE A DAY.
     Route: 048
  4. FUROSEMIDE [Suspect]
     Active Substance: FUROSEMIDE
     Indication: Oedema
     Route: 048
  5. FUROSEMIDE [Suspect]
     Active Substance: FUROSEMIDE
     Indication: Hepatic cirrhosis
  6. FUROSEMIDE [Suspect]
     Active Substance: FUROSEMIDE
     Indication: Peripheral swelling
  7. SPIRONOLACTONE [Suspect]
     Active Substance: SPIRONOLACTONE
     Indication: Oedema
     Route: 048
  8. SPIRONOLACTONE [Suspect]
     Active Substance: SPIRONOLACTONE
     Indication: Hepatic cirrhosis
  9. SPIRONOLACTONE [Suspect]
     Active Substance: SPIRONOLACTONE
     Indication: Peripheral swelling
  10. SODIUM [Concomitant]
     Active Substance: SODIUM
     Indication: Ascites
  11. OMEPRAZOLE [Concomitant]
     Active Substance: OMEPRAZOLE
     Indication: Product used for unknown indication
     Dosage: DELAYED RELEASE CAPSULE
  12. CHLORTHALIDONE [Concomitant]
     Active Substance: CHLORTHALIDONE
     Indication: Product used for unknown indication
  13. CALCIUM [Concomitant]
     Active Substance: CALCIUM
     Indication: Product used for unknown indication
  14. FLUTICASONE FUROATE [Concomitant]
     Active Substance: FLUTICASONE FUROATE
     Indication: Product used for unknown indication

REACTIONS (10)
  - Hepatic encephalopathy [Unknown]
  - Dehydration [Unknown]
  - Memory impairment [Recovered/Resolved]
  - Sluggishness [Recovered/Resolved]
  - Feeling abnormal [Recovered/Resolved]
  - Spider naevus [Unknown]
  - Non-pitting oedema [Unknown]
  - Palmar erythema [Unknown]
  - Diarrhoea [Unknown]
  - Drug ineffective [Unknown]
